FAERS Safety Report 6732601-X (Version None)
Quarter: 2010Q2

REPORT INFORMATION
  Report Type: 
  Country: None (occurrence: None)
  Receive Date: 20100519
  Receipt Date: 20100506
  Transmission Date: 20101027
  Serious: Yes (Other)
  Sender: FDA-Public Use
  Company Number: PHHY2010DE17478

PATIENT
  Age: 57 Year
  Sex: Male

DRUGS (3)
  1. LEPONEX [Suspect]
     Dosage: 225 MG/DAY
     Route: 048
  2. LEPONEX [Suspect]
     Dosage: 275 MG/DAY
     Route: 048
  3. DIAZEPAM [Concomitant]
     Dosage: 1 TABLET TO NIGHT
     Route: 048

REACTIONS (4)
  - CARCINOEMBRYONIC ANTIGEN INCREASED [None]
  - COAGULOPATHY [None]
  - HAEMOGLOBIN DECREASED [None]
  - HYPERHOMOCYSTEINAEMIA [None]
